FAERS Safety Report 15540831 (Version 1)
Quarter: 2018Q4

REPORT INFORMATION
  Report Type: Spontaneous
  Country: US (occurrence: US)
  Receive Date: 20181023
  Receipt Date: 20181023
  Transmission Date: 20190205
  Serious: Yes (Other)
  Sender: FDA-Public Use
  Company Number: US-MYLANLABS-2018M1077146

PATIENT
  Age: 60 Year
  Sex: Female

DRUGS (8)
  1. DECADRON [Suspect]
     Active Substance: DEXAMETHASONE
     Indication: PRODUCT USED FOR UNKNOWN INDICATION
     Dosage: INCREASED TO 4MG DAILY
     Route: 065
  2. DECADRON [Suspect]
     Active Substance: DEXAMETHASONE
     Route: 065
  3. PROPYLTHIOURACIL. [Suspect]
     Active Substance: PROPYLTHIOURACIL
     Route: 065
  4. DECADRON [Suspect]
     Active Substance: DEXAMETHASONE
     Dosage: FURTHER, DECREASED TO 2MG DAILY
     Route: 065
  5. PROPRANOLOL [Suspect]
     Active Substance: PROPRANOLOL HYDROCHLORIDE
     Indication: CARDIAC FAILURE
  6. POTASSIUM IODATE [Suspect]
     Active Substance: POTASSIUM IODATE
     Indication: ENDOCRINE OPHTHALMOPATHY
     Dosage: 3 DROPS THRICE DAILY; LATER DOSE WAS INCREASED
     Route: 065
  7. PROPRANOLOL [Suspect]
     Active Substance: PROPRANOLOL HYDROCHLORIDE
     Indication: ATRIAL FIBRILLATION
     Route: 065
  8. PROPYLTHIOURACIL. [Suspect]
     Active Substance: PROPYLTHIOURACIL
     Indication: ENDOCRINE OPHTHALMOPATHY
     Dosage: INCREASED TO 300MG THRICE DAILY
     Route: 065

REACTIONS (1)
  - Drug ineffective [Unknown]
